FAERS Safety Report 10883448 (Version 9)
Quarter: 2016Q2

REPORT INFORMATION
  Report Type: Report from Study
  Country: FR (occurrence: FR)
  Receive Date: 20150303
  Receipt Date: 20160427
  Transmission Date: 20160815
  Serious: Yes (Hospitalization, Other)
  Sender: FDA-Public Use
  Company Number: FR-SA-2015SA024306

PATIENT
  Age: 43 Year
  Sex: Female
  Weight: 73 kg

DRUGS (55)
  1. PARACETAMOL [Suspect]
     Active Substance: ACETAMINOPHEN
     Indication: DRUG THERAPY
     Route: 048
  2. POLARAMINE [Suspect]
     Active Substance: DEXCHLORPHENIRAMINE MALEATE
     Dosage: DOSE:5 MILLIGRAM(S)/MILLILITRE
     Route: 042
  3. POLARAMINE [Suspect]
     Active Substance: DEXCHLORPHENIRAMINE MALEATE
     Dosage: DOSE:5 MILLIGRAM(S)/MILLILITRE
     Route: 042
  4. POLARAMINE [Suspect]
     Active Substance: DEXCHLORPHENIRAMINE MALEATE
     Dosage: DOSE:5 MILLIGRAM(S)/MILLILITRE
     Route: 042
  5. METHYLPREDNISOLONE. [Suspect]
     Active Substance: METHYLPREDNISOLONE
     Route: 042
  6. ZELITREX [Concomitant]
     Active Substance: VALACYCLOVIR HYDROCHLORIDE
     Indication: DRUG THERAPY
     Route: 048
     Dates: start: 20150209, end: 20150212
  7. ZOVIRAX [Concomitant]
     Active Substance: ACYCLOVIR
  8. CETIRIZINE [Suspect]
     Active Substance: CETIRIZINE HYDROCHLORIDE
     Route: 048
  9. RANITIDINE. [Suspect]
     Active Substance: RANITIDINE
     Route: 048
  10. ACICLOVIR [Suspect]
     Active Substance: ACYCLOVIR
     Route: 048
  11. ACICLOVIR [Suspect]
     Active Substance: ACYCLOVIR
     Route: 048
  12. POLARAMINE [Suspect]
     Active Substance: DEXCHLORPHENIRAMINE MALEATE
     Dosage: DOSE:5 MILLIGRAM(S)/MILLILITRE
     Route: 042
  13. CETIRIZINE [Suspect]
     Active Substance: CETIRIZINE HYDROCHLORIDE
     Route: 048
  14. PARACETAMOL [Suspect]
     Active Substance: ACETAMINOPHEN
     Indication: DRUG THERAPY
     Route: 048
     Dates: start: 20150223, end: 20150223
  15. ACICLOVIR [Suspect]
     Active Substance: ACYCLOVIR
     Route: 048
  16. ALEMTUZUMAB [Suspect]
     Active Substance: ALEMTUZUMAB
     Indication: RELAPSING-REMITTING MULTIPLE SCLEROSIS
     Dosage: DOSE INCREASED
     Route: 042
     Dates: start: 20150225, end: 20150227
  17. ALEMTUZUMAB [Suspect]
     Active Substance: ALEMTUZUMAB
     Indication: RELAPSING-REMITTING MULTIPLE SCLEROSIS
     Dosage: DOSE INCREASED
     Route: 042
     Dates: start: 20150302, end: 20150302
  18. RANITIDINE. [Suspect]
     Active Substance: RANITIDINE
     Route: 042
  19. MEDROL [Suspect]
     Active Substance: METHYLPREDNISOLONE
     Route: 048
  20. PARACETAMOL [Suspect]
     Active Substance: ACETAMINOPHEN
     Indication: DRUG THERAPY
     Route: 048
  21. PARACETAMOL [Suspect]
     Active Substance: ACETAMINOPHEN
     Indication: DRUG THERAPY
     Route: 048
     Dates: start: 20150209, end: 20150215
  22. ACICLOVIR [Suspect]
     Active Substance: ACYCLOVIR
     Route: 048
  23. METHYLPREDNISOLONE. [Suspect]
     Active Substance: METHYLPREDNISOLONE
     Route: 042
  24. METHYLPREDNISOLONE. [Suspect]
     Active Substance: METHYLPREDNISOLONE
     Route: 042
  25. AERIUS [Concomitant]
     Active Substance: DESLORATADINE
     Indication: DRUG THERAPY
     Route: 048
     Dates: start: 20150303
  26. ALEMTUZUMAB [Suspect]
     Active Substance: ALEMTUZUMAB
     Indication: RELAPSING-REMITTING MULTIPLE SCLEROSIS
     Route: 042
     Dates: start: 20150223, end: 20150223
  27. RANITIDINE. [Suspect]
     Active Substance: RANITIDINE
     Route: 048
  28. PARACETAMOL [Suspect]
     Active Substance: ACETAMINOPHEN
     Indication: DRUG THERAPY
     Route: 048
  29. ACICLOVIR [Suspect]
     Active Substance: ACYCLOVIR
     Route: 048
  30. ACICLOVIR [Suspect]
     Active Substance: ACYCLOVIR
     Route: 048
  31. ACICLOVIR [Suspect]
     Active Substance: ACYCLOVIR
     Route: 048
  32. METHYLPREDNISOLONE. [Suspect]
     Active Substance: METHYLPREDNISOLONE
     Route: 042
  33. METHYLPREDNISOLONE. [Suspect]
     Active Substance: METHYLPREDNISOLONE
     Route: 042
  34. RANITIDINE. [Suspect]
     Active Substance: RANITIDINE
     Route: 048
  35. RANITIDINE. [Suspect]
     Active Substance: RANITIDINE
     Route: 048
  36. RANITIDINE. [Suspect]
     Active Substance: RANITIDINE
     Route: 048
  37. RANITIDINE. [Suspect]
     Active Substance: RANITIDINE
     Route: 048
  38. PARACETAMOL [Suspect]
     Active Substance: ACETAMINOPHEN
     Indication: DRUG THERAPY
     Route: 048
  39. ACICLOVIR [Suspect]
     Active Substance: ACYCLOVIR
     Route: 048
  40. ACICLOVIR [Suspect]
     Active Substance: ACYCLOVIR
     Route: 048
     Dates: start: 20150303
  41. CETIRIZINE [Suspect]
     Active Substance: CETIRIZINE HYDROCHLORIDE
     Route: 048
  42. RANITIDINE. [Suspect]
     Active Substance: RANITIDINE
     Route: 048
  43. RANITIDINE. [Suspect]
     Active Substance: RANITIDINE
     Route: 048
  44. RANITIDINE. [Suspect]
     Active Substance: RANITIDINE
     Route: 048
  45. PARACETAMOL [Suspect]
     Active Substance: ACETAMINOPHEN
     Indication: DRUG THERAPY
     Route: 048
  46. ACICLOVIR [Suspect]
     Active Substance: ACYCLOVIR
     Route: 048
  47. MIRENA [Concomitant]
     Active Substance: LEVONORGESTREL
     Indication: DRUG THERAPY
     Route: 067
  48. CETIRIZINE [Suspect]
     Active Substance: CETIRIZINE HYDROCHLORIDE
     Route: 048
  49. CETIRIZINE [Suspect]
     Active Substance: CETIRIZINE HYDROCHLORIDE
     Route: 048
  50. CETIRIZINE [Suspect]
     Active Substance: CETIRIZINE HYDROCHLORIDE
     Route: 048
  51. RANITIDINE. [Suspect]
     Active Substance: RANITIDINE
     Route: 048
  52. RANITIDINE. [Suspect]
     Active Substance: RANITIDINE
     Route: 048
  53. ACICLOVIR [Suspect]
     Active Substance: ACYCLOVIR
     Route: 048
  54. POLARAMINE [Suspect]
     Active Substance: DEXCHLORPHENIRAMINE MALEATE
     Dosage: DOSE:5 MILLIGRAM(S)/MILLILITRE
     Route: 042
  55. LOVENOX [Concomitant]
     Active Substance: ENOXAPARIN SODIUM
     Indication: PROPHYLAXIS
     Dosage: DOSE: 4000 UI
     Route: 058
     Dates: start: 20150223, end: 20150302

REACTIONS (4)
  - Fibrin D dimer increased [Recovered/Resolved]
  - Pyrexia [Recovered/Resolved]
  - Affective disorder [Recovered/Resolved]
  - Tachycardia [Recovered/Resolved]

NARRATIVE: CASE EVENT DATE: 20150223
